FAERS Safety Report 6104279-X (Version None)
Quarter: 2009Q1

REPORT INFORMATION
  Report Type: 
  Country: None (occurrence: None)
  Receive Date: 20090305
  Receipt Date: 20090223
  Transmission Date: 20090719
  Serious: Yes (Other)
  Sender: FDA-Public Use
  Company Number: US-WYE-H08323909

PATIENT
  Sex: Female
  Weight: 39.95 kg

DRUGS (3)
  1. PREMARIN [Suspect]
     Indication: HYSTERECTOMY
     Route: 067
     Dates: start: 20030101, end: 20080706
  2. MECLIZINE [Concomitant]
  3. LOPRESSOR [Concomitant]

REACTIONS (4)
  - CEREBROVASCULAR ACCIDENT [None]
  - INTRACRANIAL ANEURYSM [None]
  - PALPITATIONS [None]
  - WEIGHT DECREASED [None]
